FAERS Safety Report 10513049 (Version 1)
Quarter: 2014Q4

REPORT INFORMATION
  Report Type: Spontaneous
  Country: US (occurrence: US)
  Receive Date: 20141013
  Receipt Date: 20141013
  Transmission Date: 20150528
  Serious: No
  Sender: FDA-Public Use
  Company Number: US-BIOGENIDEC-2014BI104276

PATIENT
  Age: 54 Year
  Sex: Female

DRUGS (1)
  1. TECFIDERA [Suspect]
     Active Substance: DIMETHYL FUMARATE
     Indication: MULTIPLE SCLEROSIS
     Route: 048

REACTIONS (10)
  - Blood pressure decreased [Unknown]
  - Dizziness [Unknown]
  - Pain [Unknown]
  - Hypersensitivity [Unknown]
  - Off label use [Unknown]
  - Drug dose omission [Unknown]
  - Flushing [Unknown]
  - Pruritus [Unknown]
  - Abdominal pain [Unknown]
  - Burning sensation [Unknown]
